FAERS Safety Report 8138846-9 (Version None)
Quarter: 2012Q1

REPORT INFORMATION
  Report Type: 
  Country: None (occurrence: None)
  Receive Date: 20120215
  Receipt Date: 20120203
  Transmission Date: 20120608
  Serious: Yes (Hospitalization)
  Sender: FDA-Public Use
  Company Number: JP-ELI_LILLY_AND_COMPANY-JP201108005485

PATIENT
  Age: 65 Year
  Sex: Female

DRUGS (2)
  1. FORTEO [Suspect]
     Dosage: UNK
     Route: 058
     Dates: start: 20111013
  2. FORTEO [Suspect]
     Dosage: UNK
     Route: 058

REACTIONS (7)
  - TREMOR [None]
  - COMPRESSION FRACTURE [None]
  - LUMBAR SPINAL STENOSIS [None]
  - SPINAL DEFORMITY [None]
  - BACK PAIN [None]
  - INJECTION SITE HAEMATOMA [None]
  - INJECTION SITE DISCOLOURATION [None]
